FAERS Safety Report 9605744 (Version 2)
Quarter: 2013Q4

REPORT INFORMATION
  Report Type: Spontaneous
  Country: DK (occurrence: DK)
  Receive Date: 20131008
  Receipt Date: 20131230
  Transmission Date: 20140711
  Serious: Yes (Hospitalization)
  Sender: FDA-Public Use
  Company Number: DK-UCBSA-099253

PATIENT
  Age: 33 Year
  Sex: 0
  Weight: 48 kg

DRUGS (2)
  1. CIMZIA [Suspect]
     Indication: POLYARTHRITIS
     Route: 058
     Dates: start: 20121214
  2. PREDNISOLON [Concomitant]
     Dates: start: 20081001

REACTIONS (1)
  - Urosepsis [Recovered/Resolved]
